FAERS Safety Report 10847984 (Version 1)
Quarter: 2015Q1

REPORT INFORMATION
  Report Type: Spontaneous
  Country: US (occurrence: US)
  Receive Date: 20150220
  Receipt Date: 20150220
  Transmission Date: 20150721
  Serious: Yes (Other)
  Sender: FDA-Public Use
  Company Number: US-CELGENEUS-163-21880-13050962

PATIENT
  Sex: Male

DRUGS (5)
  1. TRANSFUSIONS [Concomitant]
     Active Substance: UNSPECIFIED INGREDIENT
     Indication: FULL BLOOD COUNT DECREASED
     Route: 065
  2. REVLIMID [Suspect]
     Active Substance: LENALIDOMIDE
     Route: 048
     Dates: start: 201301
  3. VELCADE [Concomitant]
     Active Substance: BORTEZOMIB
     Indication: PLASMA CELL MYELOMA
     Route: 065
  4. REVLIMID [Suspect]
     Active Substance: LENALIDOMIDE
     Indication: PLASMA CELL MYELOMA
     Route: 048
     Dates: start: 201209
  5. PROCRIT [Concomitant]
     Active Substance: ERYTHROPOIETIN
     Indication: FULL BLOOD COUNT DECREASED
     Route: 065

REACTIONS (1)
  - Pancytopenia [Unknown]
